FAERS Safety Report 10179431 (Version 1)
Quarter: 2014Q2

REPORT INFORMATION
  Report Type: Report from Study
  Country: CA (occurrence: CA)
  Receive Date: 20140519
  Receipt Date: 20140519
  Transmission Date: 20141212
  Serious: Yes (Hospitalization)
  Sender: FDA-Public Use
  Company Number: CA-JNJFOC-20140508416

PATIENT
  Age: 55 Year
  Sex: Male
  Weight: 76.5 kg

DRUGS (1)
  1. REMICADE [Suspect]
     Indication: PRODUCT USED FOR UNKNOWN INDICATION
     Dosage: EVERY 06-08 WEEKS
     Route: 042
     Dates: start: 20120131, end: 20140507

REACTIONS (1)
  - Diverticulitis [Unknown]
